FAERS Safety Report 25980114 (Version 1)
Quarter: 2025Q4

REPORT INFORMATION
  Report Type: Spontaneous
  Country: JP (occurrence: JP)
  Receive Date: 20251030
  Receipt Date: 20251030
  Transmission Date: 20260119
  Serious: Yes (Hospitalization)
  Sender: EISAI
  Company Number: JP-Eisai-202507333_DVG_P_1

PATIENT
  Sex: Male

DRUGS (1)
  1. DAYVIGO [Suspect]
     Active Substance: LEMBOREXANT
     Indication: Insomnia
     Route: 048

REACTIONS (1)
  - Intentional overdose [Recovered/Resolved]
